FAERS Safety Report 11492859 (Version 3)
Quarter: 2015Q4

REPORT INFORMATION
  Report Type: Report from Study
  Country: AU (occurrence: AU)
  Receive Date: 20150911
  Receipt Date: 20151214
  Transmission Date: 20160304
  Serious: Yes (Hospitalization)
  Sender: FDA-Public Use
  Company Number: AU-ROCHE-1548886

PATIENT
  Age: 57 Year
  Sex: Female

DRUGS (4)
  1. ARAVA [Concomitant]
     Active Substance: LEFLUNOMIDE
     Route: 048
     Dates: start: 2012
  2. ESTALIS [Concomitant]
     Active Substance: ESTRADIOL\NORETHINDRONE ACETATE
     Dosage: 50/50, PATCH
     Route: 065
     Dates: start: 20141230
  3. ACTEMRA [Suspect]
     Active Substance: TOCILIZUMAB
     Indication: RHEUMATOID ARTHRITIS
     Route: 042
     Dates: start: 20121026
  4. OSTELIN (AUSTRALIA) [Concomitant]
     Indication: VITAMIN D
     Route: 048
     Dates: start: 20120114

REACTIONS (11)
  - Helicobacter infection [Recovered/Resolved]
  - Vaginal haemorrhage [Unknown]
  - Fatigue [Unknown]
  - Abdominal pain lower [Unknown]
  - Cystitis [Unknown]
  - Respiratory tract infection [Recovered/Resolved]
  - Wheezing [Recovered/Resolved]
  - Cervical dysplasia [Unknown]
  - Chest discomfort [Recovered/Resolved]
  - Diarrhoea [Recovered/Resolved]
  - Intestinal polyp [Recovered/Resolved]

NARRATIVE: CASE EVENT DATE: 201501
